FAERS Safety Report 12826539 (Version 2)
Quarter: 2016Q4

REPORT INFORMATION
  Report Type: Spontaneous
  Country: US (occurrence: US)
  Receive Date: 20161006
  Receipt Date: 20161129
  Transmission Date: 20170207
  Serious: No
  Sender: FDA-Public Use
  Company Number: US-JAZZ-2016-US-012819

PATIENT
  Sex: Female

DRUGS (39)
  1. XYREM [Suspect]
     Active Substance: SODIUM OXYBATE
     Indication: NARCOLEPSY
     Dosage: 2.25 G, BID
     Route: 048
     Dates: start: 201506, end: 201506
  2. SYMBICORT [Concomitant]
     Active Substance: BUDESONIDE\FORMOTEROL FUMARATE DIHYDRATE
  3. DEXFERRUM [Concomitant]
     Active Substance: IRON DEXTRAN
  4. ZEGERID [Concomitant]
     Active Substance: OMEPRAZOLE\SODIUM BICARBONATE
  5. COENZYME Q10 [Concomitant]
     Active Substance: UBIDECARENONE
  6. AMBIEN [Concomitant]
     Active Substance: ZOLPIDEM TARTRATE
  7. VITAMIN B12 [Concomitant]
     Active Substance: CYANOCOBALAMIN
  8. DYMISTA [Concomitant]
     Active Substance: AZELASTINE HYDROCHLORIDE\FLUTICASONE PROPIONATE
  9. LYRICA [Concomitant]
     Active Substance: PREGABALIN
  10. AMITIZA [Concomitant]
     Active Substance: LUBIPROSTONE
  11. MAXALT-MLT [Concomitant]
     Active Substance: RIZATRIPTAN BENZOATE
  12. XYREM [Suspect]
     Active Substance: SODIUM OXYBATE
     Dosage: 2.25 G, BID
     Route: 048
     Dates: start: 201508
  13. DULERA [Concomitant]
     Active Substance: FORMOTEROL FUMARATE DIHYDRATE\MOMETASONE FUROATE
  14. TESSALON [Concomitant]
     Active Substance: BENZONATATE
  15. CYANOCOBALAMIN. [Concomitant]
     Active Substance: CYANOCOBALAMIN
  16. BOTOX [Concomitant]
     Active Substance: ONABOTULINUMTOXINA
  17. DILAUDID [Concomitant]
     Active Substance: HYDROMORPHONE HYDROCHLORIDE
  18. DOLOBID [Concomitant]
     Active Substance: DIFLUNISAL
  19. BREO ELLIPTA [Concomitant]
     Active Substance: FLUTICASONE FUROATE\VILANTEROL TRIFENATATE
  20. DIFLUCAN [Concomitant]
     Active Substance: FLUCONAZOLE
  21. VERAPAMIL [Concomitant]
     Active Substance: VERAPAMIL HYDROCHLORIDE
  22. IRON DEXTRAN [Concomitant]
     Active Substance: IRON DEXTRAN
  23. LASIX [Concomitant]
     Active Substance: FUROSEMIDE
  24. DUONEB [Concomitant]
     Active Substance: ALBUTEROL SULFATE\IPRATROPIUM BROMIDE
  25. COMBIVENT RESPIMAT [Concomitant]
     Active Substance: ALBUTEROL SULFATE\IPRATROPIUM BROMIDE
  26. CYMBALTA [Concomitant]
     Active Substance: DULOXETINE HYDROCHLORIDE
  27. ZOLPIDEM TARTRATE. [Concomitant]
     Active Substance: ZOLPIDEM TARTRATE
  28. FIORICET [Concomitant]
     Active Substance: ACETAMINOPHEN\BUTALBITAL\CAFFEINE
  29. IRON [Concomitant]
     Active Substance: IRON
  30. VITAMIN D3 [Concomitant]
     Active Substance: CHOLECALCIFEROL
  31. LEVOTHYROXINE. [Concomitant]
     Active Substance: LEVOTHYROXINE
  32. AMITRIPTYLINE HCL [Concomitant]
     Active Substance: AMITRIPTYLINE
  33. ALVESCO [Concomitant]
     Active Substance: CICLESONIDE
  34. CLARITIN-D 12 HOUR [Concomitant]
     Active Substance: LORATADINE\PSEUDOEPHEDRINE SULFATE
  35. XYREM [Suspect]
     Active Substance: SODIUM OXYBATE
     Dosage: 3 G, BID
     Route: 048
     Dates: start: 201506, end: 201508
  36. NYSTATIN. [Concomitant]
     Active Substance: NYSTATIN
  37. SYNTHROID [Concomitant]
     Active Substance: LEVOTHYROXINE SODIUM
  38. VITAMIN D [Concomitant]
     Active Substance: CHOLECALCIFEROL
  39. XOPENEX HFA [Concomitant]
     Active Substance: LEVALBUTEROL TARTRATE

REACTIONS (5)
  - Oedema peripheral [Not Recovered/Not Resolved]
  - Restlessness [Unknown]
  - Vocal cord disorder [Unknown]
  - Therapeutic response decreased [Unknown]
  - Vitamin B complex deficiency [Not Recovered/Not Resolved]
